FAERS Safety Report 7176762-X (Version None)
Quarter: 2010Q4

REPORT INFORMATION
  Report Type: 
  Country: None (occurrence: None)
  Receive Date: 20101220
  Receipt Date: 20101206
  Transmission Date: 20110411
  Serious: Yes (Other)
  Sender: FDA-Public Use
  Company Number: PHHY2010NZ83545

PATIENT
  Age: 12 Year
  Sex: Male

DRUGS (1)
  1. RITALIN LA [Suspect]
     Dosage: UNK

REACTIONS (3)
  - DYSPHONIA [None]
  - PARALYSIS [None]
  - REGURGITATION [None]
